FAERS Safety Report 25400765 (Version 2)
Quarter: 2025Q2

REPORT INFORMATION
  Report Type: Spontaneous
  Country: PT (occurrence: PT)
  Receive Date: 20250605
  Receipt Date: 20250624
  Transmission Date: 20250717
  Serious: Yes (Other)
  Sender: BAYER HEALTHCARE PHARMACEUTICALS INC.
  Company Number: PT-BAYER-2025A073673

PATIENT
  Age: 33 Year
  Sex: Female

DRUGS (1)
  1. LEVONORGESTREL [Suspect]
     Active Substance: LEVONORGESTREL
     Route: 015
     Dates: start: 20240807

REACTIONS (11)
  - Abortion induced [None]
  - Myalgia [None]
  - Pyrexia [None]
  - Chills [None]
  - Somnolence [None]
  - Nausea [None]
  - Dysgeusia [None]
  - Vaginal haemorrhage [None]
  - Contraindicated device used [None]
  - Medical device monitoring error [None]
  - Maternal exposure during pregnancy [None]

NARRATIVE: CASE EVENT DATE: 20240101
